FAERS Safety Report 13494202 (Version 4)
Quarter: 2017Q2

REPORT INFORMATION
  Report Type: Report from Study
  Country: US (occurrence: US)
  Receive Date: 20170428
  Receipt Date: 20170620
  Transmission Date: 20170830
  Serious: No
  Sender: FDA-Public Use
  Company Number: US-AMGEN-USASP2017062820

PATIENT
  Age: 80 Year
  Sex: Female

DRUGS (9)
  1. FOLIC ACID. [Concomitant]
     Active Substance: FOLIC ACID
     Dosage: 1000 MG, QD
  2. CALCIUM CITRATE [Concomitant]
     Active Substance: CALCIUM CITRATE
     Dosage: 500 MG, UNK
  3. ESTRADIOL. [Suspect]
     Active Substance: ESTRADIOL
     Indication: PRODUCT USED FOR UNKNOWN INDICATION
     Dosage: UNK
     Route: 065
  4. METHOTREXATE. [Concomitant]
     Active Substance: METHOTREXATE
     Indication: RASH PRURITIC
     Dosage: 0.5 ML, QWK
  5. VITAMIN D3 [Concomitant]
     Active Substance: CHOLECALCIFEROL
     Dosage: 1000 MG, UNK
  6. ENBREL [Suspect]
     Active Substance: ETANERCEPT
     Indication: RHEUMATOID ARTHRITIS
  7. METHOTREXATE. [Concomitant]
     Active Substance: METHOTREXATE
     Indication: RASH MACULAR
     Dosage: UNK
     Dates: start: 201704
  8. ENBREL [Suspect]
     Active Substance: ETANERCEPT
     Indication: POLYARTHRITIS
     Dosage: 50 MG, QWK
     Route: 065
     Dates: start: 20170417
  9. ELIQUIS [Concomitant]
     Active Substance: APIXABAN
     Indication: CARDIAC FIBRILLATION
     Dosage: UNK

REACTIONS (13)
  - Injection site warmth [Recovering/Resolving]
  - Injection site pruritus [Recovering/Resolving]
  - Hot flush [Unknown]
  - Rash macular [Recovered/Resolved]
  - Pruritus [Recovered/Resolved]
  - Varicose vein [Unknown]
  - Off label use [Unknown]
  - Drug effect incomplete [Unknown]
  - Injection site erythema [Recovering/Resolving]
  - Rash pruritic [Recovered/Resolved]
  - Injection site rash [Recovering/Resolving]
  - Injection site reaction [Recovering/Resolving]
  - Injection site recall reaction [Recovering/Resolving]

NARRATIVE: CASE EVENT DATE: 2017
